FAERS Safety Report 17094788 (Version 1)
Quarter: 2019Q4

REPORT INFORMATION
  Report Type: Spontaneous
  Country: US (occurrence: US)
  Receive Date: 20191130
  Receipt Date: 20191130
  Transmission Date: 20200122
  Serious: Yes (Other)
  Sender: FDA-Public Use
  Company Number: NVSC2019US049809

PATIENT
  Sex: Female

DRUGS (2)
  1. LETROZOLE. [Suspect]
     Active Substance: LETROZOLE
     Indication: BREAST CANCER METASTATIC
     Dosage: UNK
     Route: 065
     Dates: start: 201808
  2. IBRANCE [Suspect]
     Active Substance: PALBOCICLIB
     Indication: BREAST CANCER METASTATIC
     Dosage: UNK
     Route: 065
     Dates: start: 201808

REACTIONS (7)
  - Fatigue [Unknown]
  - Malignant neoplasm progression [Unknown]
  - Feeling abnormal [Unknown]
  - Abdominal pain [Unknown]
  - Malaise [Unknown]
  - Breast cancer metastatic [Unknown]
  - Influenza like illness [Unknown]
